FAERS Safety Report 7356976-6 (Version None)
Quarter: 2011Q1

REPORT INFORMATION
  Report Type: 
  Country: None (occurrence: None)
  Receive Date: 20110317
  Receipt Date: 20100211
  Transmission Date: 20110831
  Serious: No
  Sender: FDA-Public Use
  Company Number: 2010BI004863

PATIENT
  Age: 52 Year
  Sex: Female

DRUGS (1)
  1. TYSABRI [Suspect]
     Indication: MULTIPLE SCLEROSIS
     Route: 042
     Dates: start: 20090731

REACTIONS (4)
  - FOOD ALLERGY [None]
  - DRY SKIN [None]
  - ARTHROPOD BITE [None]
  - PRURITUS [None]
